FAERS Safety Report 6505874-6 (Version None)
Quarter: 2009Q4

REPORT INFORMATION
  Report Type: 
  Country: None (occurrence: None)
  Receive Date: 20091218
  Receipt Date: 20091210
  Transmission Date: 20100525
  Serious: Yes (Other)
  Sender: FDA-Public Use
  Company Number: US-BAYER-200941457NA

PATIENT
  Age: 52 Year
  Sex: Female

DRUGS (2)
  1. NEXAVAR [Suspect]
     Indication: BILE DUCT CANCER
     Route: 048
     Dates: start: 20091101, end: 20091125
  2. NEXAVAR [Suspect]
     Dosage: TOTAL DAILY DOSE: 400 MG  UNIT DOSE: 200 MG
     Route: 048

REACTIONS (2)
  - PAIN OF SKIN [None]
  - RASH [None]
